FAERS Safety Report 16628415 (Version 2)
Quarter: 2019Q3

REPORT INFORMATION
  Report Type: Report from Study
  Country: None (occurrence: US)
  Receive Date: 20190724
  Receipt Date: 20190806
  Transmission Date: 20191004
  Serious: Yes (Hospitalization, Other)
  Sender: FDA-Public Use
  Company Number: US-ABBVIE-19K-163-2859328-00

PATIENT
  Age: 64 Year
  Sex: Female
  Weight: 64.47 kg

DRUGS (17)
  1. NINLARO [Concomitant]
     Active Substance: IXAZOMIB CITRATE
     Indication: PLASMA CELL MYELOMA
     Dosage: STOPPED AFTER THREE WEEKS,
     Route: 048
     Dates: start: 20181004, end: 201810
  2. NINLARO [Concomitant]
     Active Substance: IXAZOMIB CITRATE
     Dosage: STOPPED AFTER THREE WEEKS,
     Route: 048
     Dates: start: 20181101, end: 201811
  3. NINLARO [Concomitant]
     Active Substance: IXAZOMIB CITRATE
     Dosage: STOPPED AFTER THREE WEEKS
     Route: 048
     Dates: start: 20181129, end: 201812
  4. VENCLEXTA [Suspect]
     Active Substance: VENETOCLAX
     Indication: PLASMA CELL MYELOMA
     Route: 048
     Dates: start: 201809, end: 2018
  5. VENCLEXTA [Suspect]
     Active Substance: VENETOCLAX
     Route: 048
     Dates: start: 20190119, end: 20190308
  6. ATORVASTATIN [Concomitant]
     Active Substance: ATORVASTATIN
     Indication: BLOOD CHOLESTEROL INCREASED
     Route: 048
  7. LEVETIRACETAM. [Concomitant]
     Active Substance: LEVETIRACETAM
     Indication: CEREBROVASCULAR ACCIDENT PROPHYLAXIS
     Route: 048
  8. DEXAMETHASONE. [Concomitant]
     Active Substance: DEXAMETHASONE
     Indication: PLASMA CELL MYELOMA
     Dosage: STOPPED AT WEEK FOUR
     Route: 065
     Dates: start: 20181004, end: 201811
  9. DEXAMETHASONE. [Concomitant]
     Active Substance: DEXAMETHASONE
     Dosage: STOPPED AT WEEK FOUR
     Route: 065
     Dates: start: 20181129, end: 201812
  10. TRIMETHOPRIM SULFAMETHOXAZOLE [Concomitant]
     Active Substance: SULFAMETHOXAZOLE\TRIMETHOPRIM
     Dosage: 80/160MG, TABLET TAKE ON MONDAY AND THURSDAY
  11. NELFINAVIR [Concomitant]
     Active Substance: NELFINAVIR
     Indication: PLASMA CELL MYELOMA
     Route: 048
     Dates: start: 20181004, end: 20181226
  12. VENCLEXTA [Suspect]
     Active Substance: VENETOCLAX
     Route: 048
     Dates: start: 20181004, end: 20181226
  13. ACYCLOVIR. [Concomitant]
     Active Substance: ACYCLOVIR
     Indication: ANTIVIRAL TREATMENT
     Route: 048
     Dates: start: 2011
  14. AMITRIPTYLINE [Concomitant]
     Active Substance: AMITRIPTYLINE
     Indication: ANXIETY
     Route: 048
  15. TRIMETHOPRIM SULFAMETHOXAZOLE [Concomitant]
     Active Substance: SULFAMETHOXAZOLE\TRIMETHOPRIM
     Indication: PRODUCT USED FOR UNKNOWN INDICATION
     Dosage: 80/160 MILLIGRAM
     Route: 065
  16. METOPROLOL SUCCINATE. [Concomitant]
     Active Substance: METOPROLOL SUCCINATE
     Indication: HYPERTENSION
     Route: 048
  17. DEXAMETHASONE. [Concomitant]
     Active Substance: DEXAMETHASONE
     Dosage: STOPPED AT WEEK FOUR
     Route: 065
     Dates: start: 20181101, end: 201811

REACTIONS (16)
  - Fall [Recovered/Resolved]
  - Cardiac disorder [Unknown]
  - Febrile neutropenia [Unknown]
  - Pain in extremity [Unknown]
  - Asthenia [Unknown]
  - Facial bones fracture [Recovered/Resolved]
  - Hypotension [Recovered/Resolved]
  - Thrombosis [Unknown]
  - Influenza [Unknown]
  - Catheter site pain [Unknown]
  - Pneumonia [Unknown]
  - Loss of consciousness [Recovered/Resolved]
  - Sensitive skin [Unknown]
  - Insomnia [Unknown]
  - Contusion [Recovered/Resolved]
  - Intentional product use issue [Unknown]

NARRATIVE: CASE EVENT DATE: 20190131
